FAERS Safety Report 5589254-6 (Version None)
Quarter: 2008Q1

REPORT INFORMATION
  Report Type: 
  Country: None (occurrence: None)
  Receive Date: 20080114
  Receipt Date: 20080103
  Transmission Date: 20080703
  Serious: Yes (Other)
  Sender: FDA-Public Use
  Company Number: PHEH2008US00546

PATIENT
  Sex: Male

DRUGS (1)
  1. MIACALCIN [Suspect]
     Dosage: UNK, UNK
     Dates: start: 20071227, end: 20080101

REACTIONS (6)
  - AGITATION [None]
  - HEADACHE [None]
  - NASAL DISCOMFORT [None]
  - PHARYNGOLARYNGEAL PAIN [None]
  - PSYCHOMOTOR HYPERACTIVITY [None]
  - SINUS DISORDER [None]
